FAERS Safety Report 8464307-3 (Version None)
Quarter: 2012Q2

REPORT INFORMATION
  Report Type: 
  Country: None (occurrence: None)
  Receive Date: 20120625
  Receipt Date: 20120619
  Transmission Date: 20120825
  Serious: No
  Sender: FDA-Public Use
  Company Number: US-B.I. PHARMACEUTICALS,INC./RIDGEFIELD-2012-BP-14044BP

PATIENT
  Sex: Male

DRUGS (4)
  1. ACE INHIBITOR [Concomitant]
  2. PRADAXA [Suspect]
  3. PRADAXA [Suspect]
  4. COREG [Concomitant]

REACTIONS (5)
  - INTERNATIONAL NORMALISED RATIO INCREASED [None]
  - HAEMORRHAGE [None]
  - FALL [None]
  - BLOOD PRESSURE SYSTOLIC DECREASED [None]
  - BLOOD PRESSURE DIASTOLIC INCREASED [None]
